FAERS Safety Report 11559726 (Version 1)
Quarter: 2015Q3

REPORT INFORMATION
  Report Type: Spontaneous
  Country: US (occurrence: US)
  Receive Date: 20150928
  Receipt Date: 20150928
  Transmission Date: 20151125
  Serious: Yes (Other)
  Sender: FDA-Public Use
  Company Number: US-GLAXOSMITHKLINE-US2015GSK113977

PATIENT
  Age: 80 Year
  Sex: Male

DRUGS (1)
  1. JALYN [Suspect]
     Active Substance: DUTASTERIDE\TAMSULOSIN HYDROCHLORIDE
     Indication: PROSTATOMEGALY
     Dosage: UNK
     Dates: start: 2010

REACTIONS (1)
  - Cataract operation [Unknown]

NARRATIVE: CASE EVENT DATE: 201505
